FAERS Safety Report 5471447-X (Version None)
Quarter: 2007Q3

REPORT INFORMATION
  Report Type: 
  Country: None (occurrence: None)
  Receive Date: 20070928
  Receipt Date: 20061207
  Transmission Date: 20080115
  Serious: No
  Sender: FDA-Public Use
  Company Number: US-BRISTOL-MYERS SQUIBB COMPANY-13553938

PATIENT
  Age: 72 Year
  Sex: Male

DRUGS (7)
  1. DEFINITY [Suspect]
     Indication: CHEST PAIN
     Dosage: DEFINITY INJ , DOSAGE AS FOLLOW; 1.5M/ DILUTED WITH 8.5ML NACL.
     Route: 040
     Dates: start: 20060926, end: 20060926
  2. LIPITOR [Concomitant]
  3. NORVASC [Concomitant]
  4. PREVACID [Concomitant]
  5. ECOTRIN [Concomitant]
  6. LORAZEPAM [Concomitant]
  7. VITAMIN E [Concomitant]

REACTIONS (1)
  - MUSCLE SPASMS [None]
